FAERS Safety Report 20768793 (Version 1)
Quarter: 2022Q2

REPORT INFORMATION
  Report Type: Spontaneous
  Country: US (occurrence: None)
  Receive Date: 20220428
  Receipt Date: 20220428
  Transmission Date: 20220721
  Serious: Yes (Other)
  Sender: FDA-Public Use
  Company Number: None

PATIENT
  Age: 11 Year
  Sex: Female

DRUGS (1)
  1. DUPIXENT [Suspect]
     Active Substance: DUPILUMAB
     Indication: Asthma
     Dosage: FREQUENCY : EVERY OTHER WEEK;?
     Route: 058
     Dates: start: 20220414

REACTIONS (6)
  - Extra dose administered [None]
  - Dyspnoea [None]
  - Pharyngeal swelling [None]
  - Pharyngeal disorder [None]
  - Throat clearing [None]
  - Dysphagia [None]

NARRATIVE: CASE EVENT DATE: 20220428
